FAERS Safety Report 9685562 (Version 1)
Quarter: 2013Q4

REPORT INFORMATION
  Report Type: Spontaneous
  Country: US (occurrence: US)
  Receive Date: 20131113
  Receipt Date: 20131113
  Transmission Date: 20140711
  Serious: No
  Sender: FDA-Public Use
  Company Number: US-ENDO PHARMACEUTICALS INC.-LEVT20130001

PATIENT
  Age: 53 Year
  Sex: Female
  Weight: 59.02 kg

DRUGS (1)
  1. LEVOLET TABLETS 0.075MG [Suspect]
     Indication: HYPOTHYROIDISM
     Route: 048

REACTIONS (1)
  - Blood thyroid stimulating hormone increased [Recovered/Resolved]
